FAERS Safety Report 9111401 (Version 1)
Quarter: 2013Q1

REPORT INFORMATION
  Report Type: Spontaneous
  Country: US (occurrence: US)
  Receive Date: 20130219
  Receipt Date: 20130219
  Transmission Date: 20140127
  Serious: No
  Sender: FDA-Public Use
  Company Number: US-BRISTOL-MYERS SQUIBB COMPANY-17059544

PATIENT
  Age: 52 Year
  Sex: Female
  Weight: 81.63 kg

DRUGS (5)
  1. ABATACEPT SUBQ INJECTION 125MG/ML [Suspect]
     Indication: RHEUMATOID ARTHRITIS
     Dosage: PRESCRIPTION #:  89435030?LAST INJ:22OCT2012
     Route: 058
     Dates: start: 20121022
  2. METHOTREXATE [Concomitant]
  3. PREDNISONE [Concomitant]
  4. CALCIUM [Concomitant]
  5. FOLIC ACID [Concomitant]

REACTIONS (1)
  - Injection site swelling [Unknown]
